FAERS Safety Report 16412246 (Version 1)
Quarter: 2019Q2

REPORT INFORMATION
  Report Type: Spontaneous
  Country: BE (occurrence: BE)
  Receive Date: 20190610
  Receipt Date: 20190610
  Transmission Date: 20190711
  Serious: Yes (Hospitalization, Other)
  Sender: FDA-Public Use
  Company Number: PHHY2019BE128853

PATIENT
  Age: 62 Year
  Sex: Female
  Weight: 83.5 kg

DRUGS (19)
  1. LASIX [Concomitant]
     Active Substance: FUROSEMIDE
     Indication: WEIGHT INCREASED
     Route: 065
     Dates: start: 20170111, end: 20170111
  2. OXALIPLATIN. [Suspect]
     Active Substance: OXALIPLATIN
     Indication: PRODUCT USED FOR UNKNOWN INDICATION
     Dosage: 1 OT, Q2W
     Route: 042
     Dates: start: 20170102
  3. INUVAIR [Concomitant]
     Active Substance: BECLOMETHASONE DIPROPIONATE\FORMOTEROL FUMARATE
     Indication: BRONCHITIS
     Route: 065
     Dates: start: 20170119, end: 20170320
  4. PANTOMED [Concomitant]
     Indication: PRODUCT USED FOR UNKNOWN INDICATION
     Route: 065
  5. MIRTAZAPINE. [Concomitant]
     Active Substance: MIRTAZAPINE
     Indication: PRODUCT USED FOR UNKNOWN INDICATION
     Route: 065
  6. 5-FU [Suspect]
     Active Substance: FLUOROURACIL
     Indication: COLORECTAL CANCER
     Dosage: 1 OT, Q2W
     Route: 042
     Dates: start: 20170102
  7. LANTUS [Concomitant]
     Active Substance: INSULIN GLARGINE
     Indication: PRODUCT USED FOR UNKNOWN INDICATION
     Route: 065
  8. ACTRAPID [Concomitant]
     Active Substance: INSULIN HUMAN
     Indication: HYPERGLYCAEMIA
     Route: 065
  9. NEULASTA [Concomitant]
     Active Substance: PEGFILGRASTIM
     Indication: PRODUCT USED FOR UNKNOWN INDICATION
     Route: 065
  10. LIPITOR [Concomitant]
     Active Substance: ATORVASTATIN CALCIUM
     Indication: PRODUCT USED FOR UNKNOWN INDICATION
     Route: 065
  11. EMCONCOR [Concomitant]
     Active Substance: BISOPROLOL FUMARATE
     Indication: PRODUCT USED FOR UNKNOWN INDICATION
     Route: 065
  12. SOMATULINE [Concomitant]
     Active Substance: LANREOTIDE ACETATE
     Indication: PRODUCT USED FOR UNKNOWN INDICATION
     Route: 065
  13. ALOXI [Concomitant]
     Active Substance: PALONOSETRON HYDROCHLORIDE
     Indication: PRODUCT USED FOR UNKNOWN INDICATION
     Route: 065
  14. LEUCOVORIN. [Suspect]
     Active Substance: LEUCOVORIN
     Indication: COLORECTAL CANCER
     Dosage: 1 OT, Q2W
     Route: 042
     Dates: start: 20161222
  15. LITICAN [Concomitant]
     Active Substance: ALIZAPRIDE HYDROCHLORIDE
     Indication: PRODUCT USED FOR UNKNOWN INDICATION
     Route: 065
  16. BEVACIZUMAB. [Suspect]
     Active Substance: BEVACIZUMAB
     Indication: COLORECTAL CANCER
     Dosage: 1 OT, Q2W
     Route: 042
     Dates: start: 20161222, end: 20170713
  17. NOVORAPID [Concomitant]
     Active Substance: INSULIN ASPART
     Indication: PRODUCT USED FOR UNKNOWN INDICATION
     Route: 065
  18. LYSOMUCIL [Concomitant]
     Active Substance: ACETYLCYSTEINE
     Indication: COUGH
     Route: 065
  19. DOMPERIDONE [Concomitant]
     Active Substance: DOMPERIDONE
     Indication: PRODUCT USED FOR UNKNOWN INDICATION
     Route: 065

REACTIONS (20)
  - Small intestinal obstruction [Recovered/Resolved]
  - Weight decreased [Not Recovered/Not Resolved]
  - General physical health deterioration [Not Recovered/Not Resolved]
  - Urinary tract infection [Recovered/Resolved]
  - Thoracic vertebral fracture [Not Recovered/Not Resolved]
  - Bronchitis [Recovered/Resolved]
  - Polyneuropathy [Not Recovered/Not Resolved]
  - Hyperglycaemia [Not Recovered/Not Resolved]
  - Cough [Not Recovered/Not Resolved]
  - Weight increased [Recovered/Resolved]
  - International normalised ratio increased [Not Recovered/Not Resolved]
  - Nausea [Not Recovered/Not Resolved]
  - Vitamin D deficiency [Not Recovered/Not Resolved]
  - Decubitus ulcer [Not Recovered/Not Resolved]
  - Hypomagnesaemia [Recovered/Resolved]
  - Decreased appetite [Not Recovered/Not Resolved]
  - Hypokalaemia [Recovered/Resolved]
  - Constipation [Not Recovered/Not Resolved]
  - Thrombocytopenia [Not Recovered/Not Resolved]
  - Aphthous ulcer [Not Recovered/Not Resolved]

NARRATIVE: CASE EVENT DATE: 20170105
